FAERS Safety Report 9058836 (Version 2)
Quarter: 2013Q1

REPORT INFORMATION
  Report Type: Spontaneous
  Country: DE (occurrence: DE)
  Receive Date: 20130204
  Receipt Date: 20130226
  Transmission Date: 20140127
  Serious: No
  Sender: FDA-Public Use
  Company Number: DE-ROCHE-1185671

PATIENT
  Age: 5 Year
  Sex: Male
  Weight: 20 kg

DRUGS (2)
  1. TAMIFLU [Suspect]
     Indication: INFLUENZA
     Route: 048
     Dates: start: 20130129
  2. NUROFEN [Concomitant]
     Indication: PYREXIA
     Route: 048

REACTIONS (4)
  - Abdominal pain upper [Unknown]
  - Underdose [Unknown]
  - Vomiting [Recovering/Resolving]
  - Nausea [Recovering/Resolving]
